FAERS Safety Report 20638973 (Version 1)
Quarter: 2022Q1

REPORT INFORMATION
  Report Type: Report from Study
  Country: US (occurrence: US)
  Receive Date: 20220325
  Receipt Date: 20220325
  Transmission Date: 20220423
  Serious: Yes (Other)
  Sender: FDA-Public Use
  Company Number: US-ABBVIE-22K-163-4330242-00

PATIENT
  Sex: Female

DRUGS (3)
  1. HUMIRA [Suspect]
     Active Substance: ADALIMUMAB
     Indication: Rheumatoid arthritis
     Dosage: CITRATE FREE
     Route: 058
  2. PREDNISONE [Concomitant]
     Active Substance: PREDNISONE
     Indication: Product used for unknown indication
     Dates: start: 202101
  3. METHOTREXATE [Concomitant]
     Active Substance: METHOTREXATE
     Indication: Product used for unknown indication

REACTIONS (10)
  - Iliac artery occlusion [Unknown]
  - Fatigue [Unknown]
  - Spinal disorder [Unknown]
  - Arthropathy [Unknown]
  - Injection site bruising [Unknown]
  - Infection [Unknown]
  - Asthma [Unknown]
  - Pain [Unknown]
  - Pyrexia [Unknown]
  - Liver function test abnormal [Unknown]
